FAERS Safety Report 12976884 (Version 6)
Quarter: 2017Q1

REPORT INFORMATION
  Report Type: Report from Study
  Country: US (occurrence: US)
  Receive Date: 20161128
  Receipt Date: 20170203
  Transmission Date: 20170428
  Serious: Yes (Hospitalization, Other)
  Sender: FDA-Public Use
  Company Number: PHEH2016US030798

PATIENT
  Age: 48 Year
  Sex: Female
  Weight: 79.37 kg

DRUGS (2)
  1. GILENYA [Suspect]
     Active Substance: FINGOLIMOD HYDROCHLORIDE
     Dosage: 0.5 MG, QD
     Route: 048
     Dates: start: 20161228
  2. GILENYA [Suspect]
     Active Substance: FINGOLIMOD HYDROCHLORIDE
     Indication: RELAPSING-REMITTING MULTIPLE SCLEROSIS
     Dosage: 0.5 MG, QD
     Route: 048
     Dates: start: 200901, end: 201601

REACTIONS (9)
  - Facial paralysis [Unknown]
  - Pain [Unknown]
  - Multiple sclerosis relapse [Unknown]
  - Muscular weakness [Unknown]
  - Incontinence [Unknown]
  - Monoplegia [Unknown]
  - Hypoaesthesia [Unknown]
  - Abasia [Unknown]
  - Muscle spasticity [Unknown]

NARRATIVE: CASE EVENT DATE: 201605
